FAERS Safety Report 17478913 (Version 2)
Quarter: 2020Q3

REPORT INFORMATION
  Report Type: Report from Study
  Country: GB (occurrence: GB)
  Receive Date: 20200228
  Receipt Date: 20200707
  Transmission Date: 20201102
  Serious: Yes (Death, Hospitalization)
  Sender: FDA-Public Use
  Company Number: GB-JNJFOC-20191114475

PATIENT
  Age: 67 Year
  Sex: Male
  Weight: 127.5 kg

DRUGS (7)
  1. FLUCLOXACILLIN [Concomitant]
     Active Substance: FLUCLOXACILLIN
     Dates: start: 20180622, end: 20180629
  2. MOXONIDINE [Concomitant]
     Active Substance: MOXONIDINE
     Dates: start: 20041101
  3. AMILORIDE [Concomitant]
     Active Substance: AMILORIDE
     Dates: start: 20041101
  4. STELARA [Suspect]
     Active Substance: USTEKINUMAB
     Indication: PSORIASIS
     Route: 058
     Dates: start: 20171103, end: 20180712
  5. CLOPIDOGREL [Concomitant]
     Active Substance: CLOPIDOGREL BISULFATE
     Dates: start: 20041101
  6. DOXAZOSIN [Concomitant]
     Active Substance: DOXAZOSIN MESYLATE
     Dates: start: 20041101
  7. DAPAGLIFLOZIN. [Concomitant]
     Active Substance: DAPAGLIFLOZIN
     Dates: start: 20041101

REACTIONS (4)
  - Diabetic ketoacidosis [Recovered/Resolved]
  - Sepsis [Fatal]
  - Abscess [Fatal]
  - Ascites [Unknown]

NARRATIVE: CASE EVENT DATE: 20180824
